FAERS Safety Report 23950309 (Version 1)
Quarter: 2024Q2

REPORT INFORMATION
  Report Type: Spontaneous
  Country: CZ (occurrence: None)
  Receive Date: 20240607
  Receipt Date: 20240607
  Transmission Date: 20240716
  Serious: Yes (Other)
  Sender: FDA-Public Use
  Company Number: CZ-ROCHE-3575735

PATIENT
  Age: 76 Year
  Sex: Female

DRUGS (1)
  1. ALECENSA [Suspect]
     Active Substance: ALECTINIB HYDROCHLORIDE
     Indication: Product use in unapproved indication
     Route: 065
     Dates: start: 20240430, end: 20240521

REACTIONS (5)
  - Atrial fibrillation [Unknown]
  - Swelling face [Unknown]
  - Dyspnoea [Unknown]
  - Peripheral swelling [Unknown]
  - Swelling [Unknown]

NARRATIVE: CASE EVENT DATE: 20240507
